FAERS Safety Report 8378556-6 (Version None)
Quarter: 2012Q2

REPORT INFORMATION
  Report Type: 
  Country: None (occurrence: None)
  Receive Date: 20120522
  Receipt Date: 20120510
  Transmission Date: 20120825
  Serious: Yes (Hospitalization)
  Sender: FDA-Public Use
  Company Number: US-ELI_LILLY_AND_COMPANY-US201205005139

PATIENT
  Sex: Female

DRUGS (2)
  1. FORTEO [Suspect]
     Indication: OSTEOPOROSIS
     Dosage: UNK
     Dates: start: 20120401
  2. PREDNISONE [Concomitant]
     Indication: LUNG DISORDER
     Dosage: UNK

REACTIONS (4)
  - WOUND DRAINAGE [None]
  - OEDEMA PERIPHERAL [None]
  - FEELING ABNORMAL [None]
  - FATIGUE [None]
